FAERS Safety Report 9130833 (Version 2)
Quarter: 2013Q4

REPORT INFORMATION
  Report Type: Spontaneous
  Country: FR (occurrence: FR)
  Receive Date: 20130301
  Receipt Date: 20131108
  Transmission Date: 20140711
  Serious: Yes (Death, Other)
  Sender: FDA-Public Use
  Company Number: FR-PFIZER INC-2013070119

PATIENT
  Age: 49 Year
  Sex: Female

DRUGS (10)
  1. FLUOROURACILE PFIZER [Suspect]
     Indication: RECTAL CANCER
     Dosage: 1660 MG/DAY ON DAY 1, DAY 2, DAY 3 AND DAY 4
     Route: 042
     Dates: start: 20110808
  2. FLUOROURACILE PFIZER [Suspect]
     Dosage: 1580 MG, 1X/DAY, ON DAY 1-2-3
     Route: 042
     Dates: start: 20120827, end: 20120829
  3. AMETYCINE [Suspect]
     Indication: RECTAL CANCER
     Dosage: 16.5 MG, 1X/DAY ON DAY 1
     Route: 042
     Dates: start: 20110808, end: 20110808
  4. AMETYCINE [Suspect]
     Dosage: 16 MG, 1X/DAY
     Route: 042
     Dates: start: 20110905, end: 20110905
  5. AMETYCINE [Suspect]
     Dosage: 16 MG, 1X/DAY, ON DAY 1
     Route: 042
     Dates: start: 20120827, end: 20120827
  6. GABAPENTIN [Concomitant]
     Dosage: 600 MG, ONE TABLET IN THE MORNING AND MIDDAY, TWO TABLETS IN THE EVENING
  7. SKENAN [Concomitant]
     Dosage: 30 MG, 2X/DAY, ONE CAPSULE IN THE MORNING AND ONE IN THE EVENING
  8. MANTADIX [Concomitant]
     Dosage: 1 DF, 1X/DAY (100, NO UNITS)
  9. SEROPRAM [Concomitant]
     Dosage: 20 MG, 2X/DAY, ONE IN THE MORNING AND ONE IN THE EVENING
  10. AVONEX [Concomitant]
     Dosage: 1 DF, WEEKLY

REACTIONS (5)
  - Nervous system disorder [Fatal]
  - Renal failure acute [Fatal]
  - Posterior reversible encephalopathy syndrome [Unknown]
  - Disease progression [Unknown]
  - Rectal cancer [Unknown]
